FAERS Safety Report 7433645-5 (Version None)
Quarter: 2011Q2

REPORT INFORMATION
  Report Type: 
  Country: None (occurrence: None)
  Receive Date: 20110422
  Receipt Date: 20110412
  Transmission Date: 20111010
  Serious: Yes (Hospitalization, Disabling, Other)
  Sender: FDA-Public Use
  Company Number: US-MERCK-1101USA01550

PATIENT
  Age: 55 Year
  Sex: Male
  Weight: 93 kg

DRUGS (5)
  1. ZOCOR [Concomitant]
     Indication: HYPERCHOLESTEROLAEMIA
     Route: 048
     Dates: start: 19940101
  2. ACTONEL [Suspect]
     Indication: OSTEOPOROSIS
     Route: 065
  3. FOSAMAX [Suspect]
     Route: 048
     Dates: start: 20050505
  4. FOSAMAX [Suspect]
     Indication: OSTEOPOROSIS
     Route: 048
     Dates: start: 20021001, end: 20080101
  5. ALENDRONATE SODIUM [Suspect]
     Indication: OSTEOPOROSIS
     Route: 048
     Dates: start: 20080101, end: 20101002

REACTIONS (45)
  - OVERDOSE [None]
  - HYPERPARATHYROIDISM [None]
  - HYPERLIPIDAEMIA [None]
  - IMPAIRED HEALING [None]
  - RIB FRACTURE [None]
  - PRURITUS ALLERGIC [None]
  - HYPOPARATHYROIDISM SECONDARY [None]
  - SPINAL COMPRESSION FRACTURE [None]
  - RHINITIS [None]
  - TONSILLAR DISORDER [None]
  - HYPERTENSION [None]
  - DEPRESSION [None]
  - VITAMIN D DEFICIENCY [None]
  - CALCIUM DEFICIENCY [None]
  - TIBIA FRACTURE [None]
  - DENTAL CARIES [None]
  - ADVERSE DRUG REACTION [None]
  - ANKLE FRACTURE [None]
  - CHRONIC OBSTRUCTIVE PULMONARY DISEASE [None]
  - ASTHMA [None]
  - UPPER-AIRWAY COUGH SYNDROME [None]
  - LOOSE TOOTH [None]
  - ANXIETY [None]
  - WHEEZING [None]
  - BACK PAIN [None]
  - CONVULSION [None]
  - THROMBOCYTOPENIA [None]
  - CHEST PAIN [None]
  - SPINAL FRACTURE [None]
  - FEMUR FRACTURE [None]
  - HYPOGONADISM [None]
  - COUGH [None]
  - TOOTH FRACTURE [None]
  - BLOOD TESTOSTERONE DECREASED [None]
  - PNEUMONIA [None]
  - PERIODONTAL DISEASE [None]
  - TOOTH ABSCESS [None]
  - ROAD TRAFFIC ACCIDENT [None]
  - ARTHROPATHY [None]
  - OSTEONECROSIS OF JAW [None]
  - ADENOIDAL DISORDER [None]
  - ABSCESS DRAINAGE [None]
  - BRONCHITIS CHRONIC [None]
  - ORAL INFECTION [None]
  - BONE DENSITY DECREASED [None]
